FAERS Safety Report 9892115 (Version 2)
Quarter: 2014Q2

REPORT INFORMATION
  Report Type: Spontaneous
  Country: IT (occurrence: IT)
  Receive Date: 20140212
  Receipt Date: 20140404
  Transmission Date: 20141212
  Serious: Yes (Other)
  Sender: FDA-Public Use
  Company Number: IT-GLAXOSMITHKLINE-B0968099A

PATIENT
  Age: 77 Year
  Sex: Female

DRUGS (4)
  1. PROPAFENONE [Suspect]
     Indication: PALPITATIONS
     Dosage: 300MG AS REQUIRED
     Route: 048
     Dates: start: 20131210, end: 20131223
  2. ACETYLSALICYLIC ACID [Suspect]
     Indication: CARDIAC FIBRILLATION
     Dosage: 100MG PER DAY
     Route: 048
     Dates: start: 20131210, end: 20131223
  3. IRBESARTAN [Suspect]
     Indication: CARDIAC FIBRILLATION
     Dosage: 150MG PER DAY
     Route: 048
     Dates: start: 20131210, end: 20131223
  4. LOBIVON [Concomitant]
     Indication: HYPERTENSION
     Route: 048

REACTIONS (3)
  - Atrial fibrillation [Recovered/Resolved]
  - Blood pressure increased [Recovered/Resolved]
  - Drug ineffective [Recovered/Resolved]
